FAERS Safety Report 5487928-9 (Version None)
Quarter: 2007Q3

REPORT INFORMATION
  Report Type: 
  Country: None (occurrence: None)
  Receive Date: 20070925
  Receipt Date: 20070622
  Transmission Date: 20080115
  Serious: No
  Sender: FDA-Public Use
  Company Number: 2007US001450

PATIENT
  Age: 92 Year
  Sex: Female

DRUGS (12)
  1. VESICARE [Suspect]
     Indication: DRUG USE FOR UNKNOWN INDICATION
     Dosage: 5 MG, UID/QD
  2. ALLOPURINOL [Concomitant]
  3. AMIODARONE HCL [Concomitant]
  4. CELEBREX [Concomitant]
  5. FERROUS SULFATE TAB [Concomitant]
  6. FUROSEMIDE (FUROSEMIDE SODIUM) [Concomitant]
  7. SYNTRHOID (LEVOTHYROXINE SODIUM) [Concomitant]
  8. MAGNESIUM OXIDE (MAGNESIUM OXIDE) [Concomitant]
  9. LOPRESSOR [Concomitant]
  10. PREVACID [Concomitant]
  11. OSCAL [Concomitant]
  12. CENTRUM SILVER (ASCORBIC ACID, MINERALS NOS, VITAMINS NOS, VITAMIN B N [Concomitant]

REACTIONS (3)
  - CONSTIPATION [None]
  - RECTAL FISSURE [None]
  - RECTAL HAEMORRHAGE [None]
